FAERS Safety Report 17032612 (Version 2)
Quarter: 2019Q4

REPORT INFORMATION
  Report Type: Spontaneous
  Country: US (occurrence: US)
  Receive Date: 20191114
  Receipt Date: 20191204
  Transmission Date: 20200122
  Serious: Yes (Hospitalization)
  Sender: FDA-Public Use
  Company Number: US-UNITED THERAPEUTICS-UNT-2019-016939

PATIENT
  Age: 69 Year
  Sex: Female
  Weight: 47.62 kg

DRUGS (4)
  1. ADEMPAS [Suspect]
     Active Substance: RIOCIGUAT
     Indication: PRODUCT USED FOR UNKNOWN INDICATION
     Dosage: UNK
     Route: 065
  2. REMODULIN [Suspect]
     Active Substance: TREPROSTINIL
     Dosage: UNK, CONTINUING
     Route: 058
  3. LETAIRIS [Concomitant]
     Active Substance: AMBRISENTAN
     Indication: PRODUCT USED FOR UNKNOWN INDICATION
     Dosage: UNK
     Route: 065
  4. REMODULIN [Suspect]
     Active Substance: TREPROSTINIL
     Indication: PULMONARY ARTERIAL HYPERTENSION
     Dosage: 0.084 ?G/KG, CONTINUING
     Route: 058
     Dates: start: 20070201

REACTIONS (9)
  - Upper respiratory tract infection [Unknown]
  - Sinus congestion [Not Recovered/Not Resolved]
  - Pneumonia aspiration [Unknown]
  - Cough [Not Recovered/Not Resolved]
  - Chronic obstructive pulmonary disease [Unknown]
  - Lethargy [Unknown]
  - Fatigue [Unknown]
  - Muscular weakness [Unknown]
  - Dyspnoea [Not Recovered/Not Resolved]

NARRATIVE: CASE EVENT DATE: 20191109
